FAERS Safety Report 9570854 (Version 2)
Quarter: 2013Q4

REPORT INFORMATION
  Report Type: Spontaneous
  Country: DE (occurrence: DE)
  Receive Date: 20131001
  Receipt Date: 20131001
  Transmission Date: 20140711
  Serious: Yes (Hospitalization, Other)
  Sender: FDA-Public Use
  Company Number: DE-BAYER-1199842088

PATIENT
  Age: 78 Year
  Sex: Female
  Weight: 49 kg

DRUGS (10)
  1. CIPROBAY [CIPROFLOXACIN HYDROCHLORIDE] [Suspect]
     Indication: PNEUMONIA
     Dosage: 800 MG (DAILY DOSE), , INTRAVENOUS
     Route: 042
     Dates: start: 19980226, end: 19980303
  2. CLEMASTINE [Concomitant]
  3. CORTISONE [CORTISONE] [Concomitant]
  4. KETAMINE [Concomitant]
     Route: 042
     Dates: start: 19980221
  5. MIDAZOLAM [Concomitant]
     Route: 042
     Dates: start: 19980221
  6. THEOPHYLLINE [Concomitant]
     Route: 042
     Dates: start: 19980221
  7. REPROTEROL [Concomitant]
  8. SUCRALFATE [Concomitant]
  9. HEPARIN [Concomitant]
  10. CEFUROXIME SODIUM [Concomitant]
     Indication: PNEUMONIA
     Dosage: 4.5 G (DAILY DOSE), , INTRAVENOUS
     Route: 042
     Dates: start: 19980223, end: 19980226

REACTIONS (8)
  - Rash [Unknown]
  - Liver disorder [Unknown]
  - Polyneuropathy [Unknown]
  - C-reactive protein increased [None]
  - Dermatitis [None]
  - Staphylococcal infection [None]
  - Transaminases increased [None]
  - Asthenia [None]
